FAERS Safety Report 5213662-6 (Version None)
Quarter: 2007Q1

REPORT INFORMATION
  Report Type: 
  Country: None (occurrence: None)
  Receive Date: 20070119
  Receipt Date: 20070115
  Transmission Date: 20070707
  Serious: Yes (Hospitalization)
  Sender: FDA-Public Use
  Company Number: AU-MERCK-0612AUS00029

PATIENT
  Age: 53 Year
  Sex: Female
  Weight: 69 kg

DRUGS (7)
  1. ZETIA [Suspect]
     Indication: HYPERCHOLESTEROLAEMIA
     Route: 048
     Dates: start: 20061001, end: 20061101
  2. ZETIA [Suspect]
     Indication: LIVER FUNCTION TEST ABNORMAL
     Route: 048
     Dates: start: 20061001, end: 20061101
  3. ESOMEPRAZOLE MAGNESIUM [Concomitant]
     Indication: GASTROOESOPHAGEAL REFLUX DISEASE
     Route: 065
     Dates: start: 20050101
  4. BUTYLSCOPOLAMINE BROMIDE [Concomitant]
     Indication: MUSCLE SPASMS
     Route: 065
  5. BUTYLSCOPOLAMINE BROMIDE [Concomitant]
     Indication: PANCREATITIS
     Route: 065
  6. METOCLOPRAMIDE HYDROCHLORIDE [Concomitant]
     Indication: MUSCLE SPASMS
     Route: 065
  7. METOCLOPRAMIDE HYDROCHLORIDE [Concomitant]
     Indication: PANCREATITIS
     Route: 065

REACTIONS (1)
  - PANCREATITIS RELAPSING [None]
